FAERS Safety Report 5965565-7 (Version None)
Quarter: 2008Q4

REPORT INFORMATION
  Report Type: 
  Country: None (occurrence: None)
  Receive Date: 20081125
  Receipt Date: 20080317
  Transmission Date: 20090506
  Serious: Yes (Hospitalization)
  Sender: FDA-Public Use
  Company Number: US-AMGEN-KDL245345

PATIENT
  Sex: Female

DRUGS (12)
  1. ENBREL [Suspect]
     Indication: RHEUMATOID ARTHRITIS
     Route: 058
     Dates: start: 20041001, end: 20060806
  2. METHOTREXATE [Concomitant]
     Route: 048
     Dates: start: 20040504
  3. FOLIC ACID [Concomitant]
     Route: 048
     Dates: start: 20040504
  4. FOSAMAX [Concomitant]
     Route: 048
     Dates: start: 20040504
  5. CALCIUM [Concomitant]
  6. ALEVE [Concomitant]
  7. ZYRTEC [Concomitant]
  8. ASCORBIC ACID [Concomitant]
  9. MULTI-VITAMINS [Concomitant]
  10. TYLENOL (CAPLET) [Concomitant]
  11. DEPO-MEDROL [Concomitant]
  12. FLONASE [Concomitant]

REACTIONS (1)
  - DIVERTICULITIS [None]
